FAERS Safety Report 14898918 (Version 1)
Quarter: 2018Q2

REPORT INFORMATION
  Report Type: Report from Study
  Country: US (occurrence: US)
  Receive Date: 20180515
  Receipt Date: 20180515
  Transmission Date: 20180711
  Serious: Yes (Other)
  Sender: FDA-Public Use
  Company Number: US-BEH-2018090449

PATIENT
  Age: 19 Year
  Sex: Female

DRUGS (9)
  1. ALBUMINAR-5 [Suspect]
     Active Substance: ALBUMIN HUMAN
     Indication: CYTOMEGALOVIRUS INFECTION
     Dosage: 146.4 ML, QMT
     Route: 042
     Dates: start: 20171129, end: 20180327
  2. BLINDED ALBUMIN 5% [Suspect]
     Active Substance: ALBUMIN HUMAN
     Dosage: UNK
     Route: 042
  3. CYTOGAM [Suspect]
     Active Substance: HUMAN CYTOMEGALOVIRUS IMMUNE GLOBULIN
     Indication: CYTOMEGALOVIRUS INFECTION
     Dosage: 146.4 ML, QMT
     Route: 042
     Dates: start: 20171129, end: 20180327
  4. CYTOGAM [Suspect]
     Active Substance: HUMAN CYTOMEGALOVIRUS IMMUNE GLOBULIN
     Dosage: UNK
     Route: 042
  5. ALBUMINAR-5 [Suspect]
     Active Substance: ALBUMIN HUMAN
     Dosage: UNK
     Route: 042
  6. ALBUMINAR-5 [Suspect]
     Active Substance: ALBUMIN HUMAN
     Indication: INFECTION PROPHYLAXIS
     Dosage: UNK
     Route: 042
  7. BLINDED ALBUMIN 5% [Suspect]
     Active Substance: ALBUMIN HUMAN
     Indication: CYTOMEGALOVIRUS INFECTION
     Dosage: 146.4 ML, QMT
     Route: 042
     Dates: start: 20171129, end: 20180327
  8. BLINDED ALBUMIN 5% [Suspect]
     Active Substance: ALBUMIN HUMAN
     Indication: INFECTION PROPHYLAXIS
     Dosage: UNK
     Route: 042
  9. CYTOGAM [Suspect]
     Active Substance: HUMAN CYTOMEGALOVIRUS IMMUNE GLOBULIN
     Indication: INFECTION PROPHYLAXIS
     Dosage: UNK
     Route: 042

REACTIONS (3)
  - Placental hypertrophy [Unknown]
  - Premature delivery [Unknown]
  - Breech presentation [Unknown]

NARRATIVE: CASE EVENT DATE: 2018
